FAERS Safety Report 13987508 (Version 3)
Quarter: 2017Q3

REPORT INFORMATION
  Report Type: Spontaneous
  Country: JP (occurrence: JP)
  Receive Date: 20170919
  Receipt Date: 20170929
  Transmission Date: 20171128
  Serious: Yes (Death, Congenital Anomaly)
  Sender: FDA-Public Use
  Company Number: JP-FERRINGPH-2017FE04422

PATIENT

DRUGS (3)
  1. FSH [Suspect]
     Active Substance: FOLLITROPIN
     Indication: IN VITRO FERTILISATION
     Dosage: 150 IU, DAILY
     Route: 064
  2. HUMAN CHORIONIC GONADOTROPIN [Suspect]
     Active Substance: GONADOTROPHIN, CHORIONIC
     Dosage: 5000 IU, ONCE/SINGLE
     Route: 064
  3. MENOTROPHIN [Suspect]
     Active Substance: MENOTROPINS
     Indication: ASSISTED FERTILISATION
     Dosage: UNK
     Route: 064

REACTIONS (1)
  - Conjoined twins [Fatal]
